FAERS Safety Report 9906398 (Version 2)
Quarter: 2014Q1

REPORT INFORMATION
  Report Type: Spontaneous
  Country: US (occurrence: US)
  Receive Date: 20140218
  Receipt Date: 20140218
  Transmission Date: 20141002
  Serious: No
  Sender: FDA-Public Use
  Company Number: US-GILEAD-2012-0050612

PATIENT
  Sex: Female

DRUGS (3)
  1. LETAIRIS [Suspect]
     Indication: PULMONARY HYPERTENSION
     Dosage: 5 MG, UNK
     Route: 048
     Dates: start: 20111201, end: 20120227
  2. LETAIRIS [Suspect]
     Dosage: 5 MG, QOD
     Route: 048
  3. LETAIRIS [Suspect]
     Dosage: 2.5 MG, UNK
     Route: 048
     Dates: start: 20120202

REACTIONS (7)
  - Renal failure [Unknown]
  - Dizziness [Unknown]
  - Palpitations [Unknown]
  - Headache [Unknown]
  - Weight increased [Unknown]
  - Swelling [Unknown]
  - Local swelling [Unknown]
